FAERS Safety Report 10771464 (Version 2)
Quarter: 2015Q2

REPORT INFORMATION
  Report Type: Report from Study
  Country: US (occurrence: US)
  Receive Date: 20150206
  Receipt Date: 20150609
  Transmission Date: 20150821
  Serious: Yes (Other)
  Sender: FDA-Public Use
  Company Number: US-SA-2014SA146893

PATIENT
  Age: 59 Year
  Sex: Female
  Weight: 48.9 kg

DRUGS (9)
  1. AUBAGIO [Suspect]
     Active Substance: TERIFLUNOMIDE
     Indication: MULTIPLE SCLEROSIS
     Route: 048
     Dates: start: 20141006
  2. NORVASC [Concomitant]
     Active Substance: AMLODIPINE BESYLATE
  3. VITAMIN D [Concomitant]
     Active Substance: CHOLECALCIFEROL
  4. VITAMIN D3 [Concomitant]
     Active Substance: CHOLECALCIFEROL
     Indication: VITAMIN D DEFICIENCY
     Dosage: DAILY DOSE:5000
     Dates: start: 200607
  5. AMLODIPINE [Concomitant]
     Active Substance: AMLODIPINE BESYLATE
     Indication: HYPERTENSION
     Dosage: DAILY DOSE: 5 MG
     Dates: start: 20060207
  6. LEVOTHYROXINE [Concomitant]
     Active Substance: LEVOTHYROXINE
     Indication: THYROID DISORDER
     Dosage: DAILY DOSE: 25 MG
     Dates: start: 201206
  7. CALCIUM [Concomitant]
     Active Substance: CALCIUM
  8. AUBAGIO [Suspect]
     Active Substance: TERIFLUNOMIDE
     Indication: MULTIPLE SCLEROSIS
     Route: 048
     Dates: end: 20141210
  9. CLONAZEPAM. [Concomitant]
     Active Substance: CLONAZEPAM
     Indication: MUSCLE SPASMS
     Dosage: DAILY DOSE^ 1MG
     Dates: start: 201308

REACTIONS (17)
  - Unresponsive to stimuli [Recovered/Resolved]
  - Dizziness [Unknown]
  - Hypoaesthesia [Recovered/Resolved]
  - Paraesthesia [Unknown]
  - Multiple sclerosis relapse [Unknown]
  - Hypoaesthesia [Unknown]
  - Asthenia [Unknown]
  - Joint swelling [Unknown]
  - Frequent bowel movements [Recovered/Resolved]
  - Weight decreased [Not Recovered/Not Resolved]
  - Dysgeusia [Not Recovered/Not Resolved]
  - Muscle spasms [Unknown]
  - Hearing impaired [Not Recovered/Not Resolved]
  - Gastrointestinal pain [Recovered/Resolved]
  - Walking aid user [Unknown]
  - Insomnia [Unknown]
  - Gastrointestinal disorder [Unknown]

NARRATIVE: CASE EVENT DATE: 201410
